FAERS Safety Report 9266659 (Version 2)
Quarter: 2013Q2

REPORT INFORMATION
  Report Type: Spontaneous
  Country: US (occurrence: US)
  Receive Date: 20130502
  Receipt Date: 20130606
  Transmission Date: 20140414
  Serious: Yes (Other)
  Sender: FDA-Public Use
  Company Number: US-ASTELLAS-2013US004576

PATIENT
  Sex: Male

DRUGS (1)
  1. PROGRAF [Suspect]
     Indication: LIVER TRANSPLANT
     Dosage: 1 MG, BID
     Route: 065
     Dates: start: 20030118

REACTIONS (4)
  - Vascular graft [Unknown]
  - Tachycardia [Unknown]
  - Tremor [Unknown]
  - Drug interaction [Unknown]
